FAERS Safety Report 7393548-1 (Version None)
Quarter: 2011Q1

REPORT INFORMATION
  Report Type: 
  Country: None (occurrence: None)
  Receive Date: 20110331
  Receipt Date: 20110331
  Transmission Date: 20110831
  Serious: No
  Sender: FDA-Public Use
  Company Number: None

PATIENT
  Age: 17 Year
  Sex: Female

DRUGS (1)
  1. MINOCYCLINE [Suspect]
     Dosage: ~13.5 MONTHS
     Dates: start: 20080602, end: 20090717

REACTIONS (5)
  - ASPARTATE AMINOTRANSFERASE INCREASED [None]
  - POLYARTHRITIS [None]
  - BLOOD IMMUNOGLOBULIN G INCREASED [None]
  - LIVER DISORDER [None]
  - ALANINE AMINOTRANSFERASE INCREASED [None]
